FAERS Safety Report 6960734-1 (Version None)
Quarter: 2010Q3

REPORT INFORMATION
  Report Type: 
  Country: None (occurrence: None)
  Receive Date: 20100901
  Receipt Date: 20100823
  Transmission Date: 20110219
  Serious: Yes (Life-Threatening)
  Sender: FDA-Public Use
  Company Number: AU-PFIZER INC-2010106148

PATIENT
  Age: 46 Year
  Sex: Male
  Weight: 96 kg

DRUGS (1)
  1. CHAMPIX [Suspect]
     Indication: TOBACCO USER
     Dosage: 0.5 MG, 1X/DAY
     Route: 048
     Dates: start: 20100205, end: 20100430

REACTIONS (5)
  - DEPRESSION [None]
  - LETHARGY [None]
  - SKIN REACTION [None]
  - SUICIDAL IDEATION [None]
  - VISUAL IMPAIRMENT [None]
